FAERS Safety Report 18312410 (Version 1)
Quarter: 2020Q3

REPORT INFORMATION
  Report Type: Spontaneous
  Country: SK (occurrence: SK)
  Receive Date: 20200925
  Receipt Date: 20200925
  Transmission Date: 20201103
  Serious: Yes (Death, Other)
  Sender: FDA-Public Use
  Company Number: SK-ASPEN-GLO2020SK009445

PATIENT
  Age: 85 Year
  Sex: Male

DRUGS (2)
  1. OBINUTUZUMAB. [Suspect]
     Active Substance: OBINUTUZUMAB
     Indication: CHRONIC LYMPHOCYTIC LEUKAEMIA
     Dosage: 6 CYCLES OF 28 DAYS
     Route: 065
     Dates: start: 201511, end: 201605
  2. CHLORAMBUCIL [Suspect]
     Active Substance: CHLORAMBUCIL
     Indication: CHRONIC LYMPHOCYTIC LEUKAEMIA
     Dosage: 6 CYCLES OF 28 DAYS
     Route: 065
     Dates: start: 201511, end: 201605

REACTIONS (2)
  - Catarrh [Recovered/Resolved]
  - Pyrexia [Recovered/Resolved]
